FAERS Safety Report 10081336 (Version 1)
Quarter: 2014Q2

REPORT INFORMATION
  Report Type: Spontaneous
  Country: FR (occurrence: None)
  Receive Date: 20140407
  Receipt Date: 20140407
  Transmission Date: 20141212
  Serious: Yes (Hospitalization, Other)
  Sender: FDA-Public Use
  Company Number: SYM-2013-12952

PATIENT
  Age: 54 Year
  Sex: 0

DRUGS (2)
  1. FLUOROURACIL [Suspect]
     Indication: LARYNGEAL CANCER
  2. CISPLATIN [Concomitant]

REACTIONS (5)
  - Myocardial ischaemia [None]
  - Chest pain [None]
  - Hypokinesia [None]
  - Cardiotoxicity [None]
  - Off label use [None]
